FAERS Safety Report 17571907 (Version 1)
Quarter: 2020Q1

REPORT INFORMATION
  Report Type: Spontaneous
  Country: US (occurrence: US)
  Receive Date: 20200323
  Receipt Date: 20200323
  Transmission Date: 20200409
  Serious: Yes (Other)
  Sender: FDA-Public Use
  Company Number: NVSC2020US077728

PATIENT
  Age: 83 Year
  Sex: Female

DRUGS (1)
  1. BEOVU [Suspect]
     Active Substance: BROLUCIZUMAB-DBLL
     Indication: NEOVASCULAR AGE-RELATED MACULAR DEGENERATION
     Dosage: 6 MG
     Route: 047
     Dates: start: 20200107, end: 20200212

REACTIONS (10)
  - Ocular hyperaemia [Recovered/Resolved]
  - Dry eye [Unknown]
  - Retinal oedema [Unknown]
  - Vitreous floaters [Unknown]
  - Retinal vasculitis [Not Recovered/Not Resolved]
  - Dry age-related macular degeneration [Unknown]
  - Retinal artery occlusion [Unknown]
  - Neovascular age-related macular degeneration [Unknown]
  - Haemorrhage [Unknown]
  - Vision blurred [Unknown]

NARRATIVE: CASE EVENT DATE: 20200119
